FAERS Safety Report 7357559-4 (Version None)
Quarter: 2011Q1

REPORT INFORMATION
  Report Type: 
  Country: None (occurrence: None)
  Receive Date: 20110317
  Receipt Date: 20110311
  Transmission Date: 20110831
  Serious: Yes (Hospitalization, Other)
  Sender: FDA-Public Use
  Company Number: GB-ELI_LILLY_AND_COMPANY-GB201103003649

PATIENT
  Age: 78 Year
  Sex: Female

DRUGS (2)
  1. MIXTARD HUMAN 70/30 [Concomitant]
  2. HUMALOG [Suspect]
     Indication: TYPE 1 DIABETES MELLITUS

REACTIONS (4)
  - DIABETIC KETOACIDOSIS [None]
  - DRUG DISPENSING ERROR [None]
  - DRUG DOSE OMISSION [None]
  - HYPOGLYCAEMIA [None]
